FAERS Safety Report 5610771-4 (Version None)
Quarter: 2008Q1

REPORT INFORMATION
  Report Type: 
  Country: None (occurrence: None)
  Receive Date: 20080201
  Receipt Date: 20080123
  Transmission Date: 20080703
  Serious: Yes (Other)
  Sender: FDA-Public Use
  Company Number: PHBS2008US01348

PATIENT
  Age: 75 Year
  Sex: Female

DRUGS (3)
  1. ZOLEDRONIC ACID [Suspect]
     Indication: BREAST CANCER
     Dosage: 4 MG ONCE PER MONTH
     Route: 042
  2. ANTINEOPLASTIC AGENTS [Concomitant]
  3. RADIOTHERAPY [Concomitant]

REACTIONS (5)
  - BONE DEBRIDEMENT [None]
  - INJURY [None]
  - OSTEONECROSIS [None]
  - SEQUESTRECTOMY [None]
  - TOOTH EXTRACTION [None]
